FAERS Safety Report 5888218-2 (Version None)
Quarter: 2008Q3

REPORT INFORMATION
  Report Type: 
  Country: None (occurrence: None)
  Receive Date: 20080916
  Receipt Date: 20080916
  Transmission Date: 20090109
  Serious: Yes (Other)
  Sender: FDA-Public Use
  Company Number: None

PATIENT
  Age: 54 Year
  Sex: Male
  Weight: 77.11 kg

DRUGS (2)
  1. CIPRO [Suspect]
     Indication: INFECTION
     Dosage: PO
     Route: 048
     Dates: start: 20071101
  2. CIPRO [Suspect]
     Indication: INFECTION
     Dosage: PO
     Route: 048
     Dates: start: 20080901

REACTIONS (2)
  - ARTHRALGIA [None]
  - TENDON RUPTURE [None]
